FAERS Safety Report 22337560 (Version 1)
Quarter: 2023Q2

REPORT INFORMATION
  Report Type: Report from Study
  Country: US (occurrence: None)
  Receive Date: 20230518
  Receipt Date: 20230518
  Transmission Date: 20230722
  Serious: Yes (Other)
  Sender: FDA-Public Use
  Company Number: US-ROCHE-3349328

PATIENT

DRUGS (9)
  1. RITUXIMAB [Suspect]
     Active Substance: RITUXIMAB
     Indication: Burkitt^s lymphoma
     Dosage: SUBSEQUENT DOSE ON 05/SEP/2013, 05/OCT/2013
     Route: 065
     Dates: start: 20130731, end: 20130731
  2. CYCLOPHOSPHAMIDE [Suspect]
     Active Substance: CYCLOPHOSPHAMIDE
     Indication: Burkitt^s lymphoma
     Dosage: SUBSEQUENT DOSE ON 09/SEP/2013, 09/OCT/2013
     Route: 065
     Dates: start: 20130804, end: 20130804
  3. PREDNISONE [Suspect]
     Active Substance: PREDNISONE
     Indication: Burkitt^s lymphoma
     Dosage: SUBSEQUENT DOSE FROM 05/SEP/2013 TO 09/SEP/2013 AND 05/OCT/2013 TO 09/OCT/2013
     Route: 065
     Dates: start: 20130731, end: 20130805
  4. VINCRISTINE [Suspect]
     Active Substance: VINCRISTINE
     Indication: Burkitt^s lymphoma
     Dosage: ,
     Route: 065
     Dates: start: 20130731, end: 20130803
  5. VINCRISTINE [Suspect]
     Active Substance: VINCRISTINE
     Dosage: SUBSEQUENT DOSE FROM  05/OCT/2013 TO 08/OCT/2013
     Route: 065
     Dates: start: 20130905, end: 20130908
  6. ETOPOSIDE [Suspect]
     Active Substance: ETOPOSIDE
     Indication: Burkitt^s lymphoma
     Dosage: SUBSEQUENT DOSE FROM 05/SEP/2013 TO 08/SEP/2013
     Route: 065
     Dates: start: 20130731, end: 20130803
  7. ETOPOSIDE [Suspect]
     Active Substance: ETOPOSIDE
     Route: 065
     Dates: start: 20131005, end: 20131008
  8. FILGRASTIM [Suspect]
     Active Substance: FILGRASTIM
     Indication: Burkitt^s lymphoma
     Dosage: SUBSEQUENT DOSE FROM 08/SEP/2013 TO 17/SEP/2013 AND 10/OCT/2013 TO 19/OCT/2013
     Route: 065
     Dates: start: 20130810, end: 20130815
  9. DOXORUBICIN [Suspect]
     Active Substance: DOXORUBICIN
     Indication: Burkitt^s lymphoma
     Dosage: SUBSEQUENT DOSE FROM 05/SEP/2013 TO 08/SEP/2013 AND 05/OCT/2013 TO 08/OCT/2013
     Route: 065
     Dates: start: 20130731, end: 20130803

REACTIONS (4)
  - Pancreatitis [Recovered/Resolved]
  - Nausea [Recovered/Resolved]
  - Vomiting [Recovered/Resolved]
  - Dehydration [Recovered/Resolved]

NARRATIVE: CASE EVENT DATE: 20130821
